FAERS Safety Report 18991965 (Version 1)
Quarter: 2021Q1

REPORT INFORMATION
  Report Type: Spontaneous
  Country: US (occurrence: US)
  Receive Date: 20210310
  Receipt Date: 20210310
  Transmission Date: 20210420
  Serious: Yes (Other)
  Sender: FDA-Public Use
  Company Number: US-PFIZER INC-2019099147

PATIENT
  Age: 67 Year
  Sex: Male

DRUGS (4)
  1. LYRICA [Suspect]
     Active Substance: PREGABALIN
     Indication: NEURALGIA
     Dosage: 150 MG, 2X/DAY [150 MG BID (TWICE A DAY)]
     Route: 048
  2. LYRICA [Suspect]
     Active Substance: PREGABALIN
     Dosage: 75 MG, 1X/DAY [75 MG QD (ONCE A DAY)]
     Route: 048
  3. LYRICA [Suspect]
     Active Substance: PREGABALIN
     Dosage: 75 MG, 2X/DAY (TAKE ONE CAPSULE BY MOUTH TWICE DAILY)
     Route: 048
  4. LYRICA [Suspect]
     Active Substance: PREGABALIN
     Indication: NEUROPATHY PERIPHERAL
     Dosage: UNK
     Route: 048
     Dates: start: 2011

REACTIONS (14)
  - Atrial fibrillation [Unknown]
  - Parkinson^s disease [Unknown]
  - Diabetes mellitus [Unknown]
  - Hypotension [Unknown]
  - Pain [Unknown]
  - Haemorrhage [Unknown]
  - Orthostatic hypertension [Unknown]
  - Nerve injury [Unknown]
  - Anaemia [Unknown]
  - Physical disability [Unknown]
  - Head injury [Unknown]
  - Renal failure [Unknown]
  - Hypotonia [Unknown]
  - Cardiac failure congestive [Unknown]

NARRATIVE: CASE EVENT DATE: 2015
